FAERS Safety Report 22921413 (Version 2)
Quarter: 2024Q3

REPORT INFORMATION
  Report Type: Spontaneous
  Country: US (occurrence: None)
  Receive Date: 20230908
  Receipt Date: 20240906
  Transmission Date: 20241016
  Serious: No
  Sender: DOMPE FARMACEUTICI
  Company Number: US-FARMAPROD-202306-1715

PATIENT
  Sex: Female

DRUGS (17)
  1. OXERVATE [Suspect]
     Active Substance: CENEGERMIN-BKBJ
     Indication: Neurotrophic keratopathy
     Route: 047
     Dates: start: 20230601
  2. OXERVATE [Suspect]
     Active Substance: CENEGERMIN-BKBJ
  3. OXERVATE [Suspect]
     Active Substance: CENEGERMIN-BKBJ
  4. ALCLOMETASONE DIPROPIONATE [Concomitant]
     Active Substance: ALCLOMETASONE DIPROPIONATE
  5. TOBRAMYCIN [Concomitant]
     Active Substance: TOBRAMYCIN\TOBRAMYCIN SULFATE
     Dosage: 300 MG / 4 ML AMPOULE FOR NEBULIZER
  6. XIIDRA [Concomitant]
     Active Substance: LIFITEGRAST
  7. MAGNESIUM [Concomitant]
     Active Substance: MAGNESIUM
  8. FLAXSEED [Concomitant]
     Active Substance: FLAX SEED
  9. CALCIUM\CHOLECALCIFEROL [Concomitant]
     Active Substance: CALCIUM\CHOLECALCIFEROL
     Dosage: 600 MG-12.5
  10. TYLENOL 8HR [Concomitant]
     Active Substance: ACETAMINOPHEN
  11. SUMATRIPTAN SUCCINATE [Concomitant]
     Active Substance: SUMATRIPTAN SUCCINATE
  12. TRAMADOL HCL [Concomitant]
     Active Substance: TRAMADOL HYDROCHLORIDE
  13. CLONIDINE [Concomitant]
     Active Substance: CLONIDINE
     Dosage: 0.1 MG / 24 HOUR TRANSDERMAL WEEKLY PATCH
  14. CELEBREX [Concomitant]
     Active Substance: CELECOXIB
  15. BENICAR HCT [Concomitant]
     Active Substance: HYDROCHLOROTHIAZIDE\OLMESARTAN MEDOXOMIL
     Dosage: 40-12.5 MG
  16. METOPROLOL SUCCINATE [Concomitant]
     Active Substance: METOPROLOL SUCCINATE
  17. UNSPECIFIED INGREDIENT [Concomitant]
     Active Substance: UNSPECIFIED INGREDIENT

REACTIONS (7)
  - Eye pain [Unknown]
  - Eye irritation [Not Recovered/Not Resolved]
  - Device use issue [Unknown]
  - Ocular discomfort [Unknown]
  - Dry eye [Unknown]
  - Lacrimation increased [Unknown]
  - Eyelids pruritus [Not Recovered/Not Resolved]
